FAERS Safety Report 9862330 (Version 1)
Quarter: 2014Q1

REPORT INFORMATION
  Report Type: Spontaneous
  Country: KR (occurrence: KR)
  Receive Date: 20140203
  Receipt Date: 20140203
  Transmission Date: 20141002
  Serious: Yes (Disabling)
  Sender: FDA-Public Use
  Company Number: KR-MYLANLABS-2014S1001651

PATIENT
  Age: 68 Year
  Sex: Female

DRUGS (7)
  1. CLOZAPINE [Suspect]
     Indication: SCHIZOPHRENIA
     Dosage: 200MG DAILY THEN 275MG DAILY
     Route: 048
  2. CLOZAPINE [Suspect]
     Indication: SCHIZOPHRENIA
     Dosage: 275MG DAILY
     Route: 048
  3. RISPERIDONE [Suspect]
     Dosage: TITRATED UP TO 1.5MG DAILY
     Route: 048
  4. ZOLPIDEM [Concomitant]
     Dosage: 12.5MG DAILY
     Route: 048
  5. LORAZEPAM [Concomitant]
     Dosage: 1MG DAILY
     Route: 048
  6. AMITRIPTYLINE [Concomitant]
     Dosage: 10MG DAILY
     Route: 048
  7. AMOXICILLIN [Concomitant]
     Indication: VIRAL UPPER RESPIRATORY TRACT INFECTION
     Route: 048

REACTIONS (6)
  - Asterixis [Recovered/Resolved]
  - Extrapyramidal disorder [Recovering/Resolving]
  - Disorientation [Unknown]
  - Antipsychotic drug level above therapeutic [Unknown]
  - Psychotic disorder [Unknown]
  - Pyrexia [Unknown]
